FAERS Safety Report 17904779 (Version 1)
Quarter: 2020Q2

REPORT INFORMATION
  Report Type: Spontaneous
  Country: US (occurrence: US)
  Receive Date: 20200616
  Receipt Date: 20200616
  Transmission Date: 20200714
  Serious: No
  Sender: FDA-Public Use
  Company Number: US-ROCHE-2562212

PATIENT
  Sex: Female

DRUGS (2)
  1. PREDNISONE. [Concomitant]
     Active Substance: PREDNISONE
     Route: 048
  2. ACTEMRA [Suspect]
     Active Substance: TOCILIZUMAB
     Indication: DRUG THERAPY
     Dosage: INFUSE 29.257 ML INTRAVENOUSLY
     Route: 042

REACTIONS (2)
  - No adverse event [Unknown]
  - Therapeutic product effect decreased [Unknown]
